FAERS Safety Report 5897082-7 (Version None)
Quarter: 2008Q3

REPORT INFORMATION
  Report Type: 
  Country: None (occurrence: None)
  Receive Date: 20080924
  Receipt Date: 20080702
  Transmission Date: 20090109
  Serious: Yes (Other)
  Sender: FDA-Public Use
  Company Number: US-ASTRAZENECA-2008UW13341

PATIENT
  Sex: Male

DRUGS (2)
  1. SEROQUEL [Suspect]
     Indication: BIPOLAR DISORDER
     Route: 048
     Dates: start: 20060201, end: 20070101
  2. DEPAKOTE [Concomitant]

REACTIONS (6)
  - ANXIETY [None]
  - DIABETES MELLITUS [None]
  - JAW DISORDER [None]
  - PANIC ATTACK [None]
  - SOMNOLENCE [None]
  - TARDIVE DYSKINESIA [None]
